FAERS Safety Report 21864179 (Version 4)
Quarter: 2023Q1

REPORT INFORMATION
  Report Type: Report from Study
  Country: EG (occurrence: EG)
  Receive Date: 20230116
  Receipt Date: 20230211
  Transmission Date: 20230418
  Serious: Yes (Other)
  Sender: FDA-Public Use
  Company Number: EG-002147023-NVSC2023EG008384

PATIENT
  Sex: Female

DRUGS (3)
  1. GILENYA [Suspect]
     Active Substance: FINGOLIMOD HYDROCHLORIDE
     Indication: Multiple sclerosis
     Dosage: 1 DOSAGE FORM, QD
     Route: 048
     Dates: start: 2017, end: 2019
  2. NEUROBION [Concomitant]
     Active Substance: CYANOCOBALAMIN\PYRIDOXINE\THIAMINE
     Indication: Supplementation therapy
     Dosage: 1 DOSAGE FORM, QMO (AMPOULE) (STOPPED TILL SIX MONTH AGO) (HE WAS NONCOMPLIED TO THE MEDICATION)
     Route: 065
     Dates: start: 2017
  3. DEVAROL S [Concomitant]
     Indication: Supplementation therapy
     Dosage: QMO (AMPOLUE) (SHE WAS NONCOMPLIED TO THE MEDICATION)
     Route: 065

REACTIONS (9)
  - Malnutrition [Not Recovered/Not Resolved]
  - Pain in extremity [Not Recovered/Not Resolved]
  - Vitamin B12 increased [Unknown]
  - Arthralgia [Not Recovered/Not Resolved]
  - White blood cell count decreased [Unknown]
  - Multiple sclerosis [Unknown]
  - Urinary incontinence [Not Recovered/Not Resolved]
  - Gait disturbance [Not Recovered/Not Resolved]
  - Drug ineffective [Recovered/Resolved]

NARRATIVE: CASE EVENT DATE: 20170101
